FAERS Safety Report 5517746-4 (Version None)
Quarter: 2007Q4

REPORT INFORMATION
  Report Type: 
  Country: None (occurrence: None)
  Receive Date: 20071114
  Receipt Date: 20071101
  Transmission Date: 20080405
  Serious: Yes (Hospitalization)
  Sender: FDA-Public Use
  Company Number: NO-GENENTECH-250333

PATIENT
  Age: 54 Year
  Sex: Male

DRUGS (7)
  1. MABTHERA [Suspect]
     Indication: PSORIATIC ARTHROPATHY
     Dosage: 2 G, Q2W
     Route: 042
     Dates: start: 20061001, end: 20070601
  2. ETANERCEPT [Suspect]
     Indication: PSORIATIC ARTHROPATHY
     Dosage: 25 MG, 2/WEEK
     Dates: start: 19990901, end: 20050601
  3. ETANERCEPT [Suspect]
     Dosage: 50 MG, 1/WEEK
     Dates: start: 20070626, end: 20070810
  4. REMICADE [Suspect]
     Indication: PSORIATIC ARTHROPATHY
     Dosage: 25 MG, 2/WEEK
     Route: 042
     Dates: start: 20050901, end: 20051201
  5. ADALIMUMAB [Suspect]
     Indication: PSORIATIC ARTHROPATHY
     Dosage: 40 MG, Q2W
     Route: 058
     Dates: start: 20050101, end: 20050701
  6. METHOTREXATE [Suspect]
     Indication: PSORIATIC ARTHROPATHY
     Dosage: 12.5 MG, 1/WEEK
     Dates: end: 20070801
  7. PREDNISOLONE [Concomitant]
     Indication: PSORIATIC ARTHROPATHY
     Dosage: UNK, UNK
     Dates: end: 20070801

REACTIONS (2)
  - DRUG EFFECT DECREASED [None]
  - TONGUE NEOPLASM MALIGNANT STAGE UNSPECIFIED [None]
